FAERS Safety Report 8013413-6 (Version None)
Quarter: 2011Q4

REPORT INFORMATION
  Report Type: 
  Country: None (occurrence: None)
  Receive Date: 20111229
  Receipt Date: 20111222
  Transmission Date: 20120403
  Serious: Yes (Death)
  Sender: FDA-Public Use
  Company Number: US-GILEAD-2011-0047771

PATIENT
  Sex: Female

DRUGS (4)
  1. REVATIO [Concomitant]
  2. VENTAVIS [Concomitant]
  3. LETAIRIS [Suspect]
     Indication: PULMONARY HYPERTENSION
     Dosage: 10 MG, UNK
     Route: 048
     Dates: start: 20071009, end: 20111204
  4. LETAIRIS [Suspect]
     Indication: SCLERODERMA

REACTIONS (1)
  - PULMONARY HYPERTENSION [None]
